FAERS Safety Report 23891057 (Version 2)
Quarter: 2024Q2

REPORT INFORMATION
  Report Type: Spontaneous
  Country: US (occurrence: US)
  Receive Date: 20240523
  Receipt Date: 20240626
  Transmission Date: 20240716
  Serious: No
  Sender: FDA-Public Use
  Company Number: US-SA-2024SA150151

PATIENT
  Age: 5 Year
  Sex: Male

DRUGS (1)
  1. ALTUVIIIO [Suspect]
     Active Substance: EFANESOCTOCOG ALFA
     Dosage: 528 UNITS/880 UNITS, PRN (AS NEEDED)
     Route: 065

REACTIONS (2)
  - Haemorrhage [Unknown]
  - Spontaneous haemorrhage [Unknown]

NARRATIVE: CASE EVENT DATE: 20240510
